FAERS Safety Report 7458259-2 (Version None)
Quarter: 2011Q2

REPORT INFORMATION
  Report Type: 
  Country: None (occurrence: None)
  Receive Date: 20110504
  Receipt Date: 20110420
  Transmission Date: 20111010
  Serious: Yes (Hospitalization)
  Sender: FDA-Public Use
  Company Number: CA-JNJFOC-20110409777

PATIENT
  Sex: Male
  Weight: 68.7 kg

DRUGS (5)
  1. IMURAN [Concomitant]
     Route: 048
  2. NORTRIPTYLINE [Concomitant]
  3. METHADONE [Concomitant]
  4. EFFEXOR [Concomitant]
  5. REMICADE [Suspect]
     Indication: CROHN'S DISEASE
     Route: 042

REACTIONS (2)
  - DIARRHOEA [None]
  - ABDOMINAL PAIN [None]
